FAERS Safety Report 9632637 (Version 1)
Quarter: 2013Q4

REPORT INFORMATION
  Report Type: Spontaneous
  Country: US (occurrence: US)
  Receive Date: 20131018
  Receipt Date: 20131018
  Transmission Date: 20140711
  Serious: Yes (Other)
  Sender: FDA-Public Use
  Company Number: US-GLAXOSMITHKLINE-A1045955A

PATIENT
  Age: 64 Year
  Sex: Male

DRUGS (1)
  1. VOTRIENT [Suspect]
     Indication: RENAL CANCER
     Dosage: 800MG UNKNOWN
     Route: 065
     Dates: start: 20110408

REACTIONS (2)
  - Metastases to bone [Unknown]
  - Metastases to adrenals [Unknown]
